FAERS Safety Report 12413610 (Version 2)
Quarter: 2016Q2

REPORT INFORMATION
  Report Type: Spontaneous
  Country: US (occurrence: US)
  Receive Date: 20160527
  Receipt Date: 20160622
  Transmission Date: 20160815
  Serious: Yes (Other)
  Sender: FDA-Public Use
  Company Number: US-009507513-1605USA012785

PATIENT
  Age: 83 Year
  Sex: Female

DRUGS (1)
  1. FOSAMAX [Suspect]
     Active Substance: ALENDRONATE SODIUM
     Dosage: 70 MG, ONCE PER WEEK
     Route: 048
     Dates: start: 201602

REACTIONS (2)
  - Wrong technique in product usage process [Unknown]
  - Dementia [Unknown]

NARRATIVE: CASE EVENT DATE: 2016
